FAERS Safety Report 5126842-5 (Version None)
Quarter: 2006Q4

REPORT INFORMATION
  Report Type: 
  Country: None (occurrence: None)
  Receive Date: 20061013
  Receipt Date: 20061005
  Transmission Date: 20070319
  Serious: Yes (Hospitalization)
  Sender: FDA-Public Use
  Company Number: CH-BRISTOL-MYERS SQUIBB COMPANY-13533724

PATIENT
  Age: 41 Year
  Sex: Male

DRUGS (5)
  1. REYATAZ [Suspect]
     Route: 048
     Dates: start: 20060807
  2. NORVIR [Interacting]
     Route: 048
     Dates: start: 20060807
  3. DORMICUM [Interacting]
     Route: 048
  4. KETALGIN [Concomitant]
     Route: 048
  5. KIVEXA [Concomitant]
     Route: 048
     Dates: start: 20060807

REACTIONS (2)
  - CONFUSIONAL STATE [None]
  - DRUG INTERACTION [None]
